FAERS Safety Report 12139894 (Version 3)
Quarter: 2016Q2

REPORT INFORMATION
  Report Type: Spontaneous
  Country: GR (occurrence: GR)
  Receive Date: 20160303
  Receipt Date: 20160415
  Transmission Date: 20160815
  Serious: Yes (Other)
  Sender: FDA-Public Use
  Company Number: GR-ROCHE-1720029

PATIENT
  Age: 52 Year
  Sex: Female

DRUGS (1)
  1. AVASTIN [Suspect]
     Active Substance: BEVACIZUMAB
     Indication: EYE DISORDER
     Route: 031

REACTIONS (3)
  - Suspected transmission of an infectious agent via product [Unknown]
  - Eye infection [Recovered/Resolved]
  - Off label use [Unknown]
